FAERS Safety Report 6370898-9 (Version None)
Quarter: 2009Q3

REPORT INFORMATION
  Report Type: 
  Country: None (occurrence: None)
  Receive Date: 20090923
  Receipt Date: 20071206
  Transmission Date: 20100115
  Serious: Yes (Other)
  Sender: FDA-Public Use
  Company Number: US-ASTRAZENECA-2006UW22329

PATIENT
  Age: 522 Month
  Sex: Female
  Weight: 118.8 kg

DRUGS (14)
  1. SEROQUEL [Suspect]
     Indication: SCHIZOPHRENIA
     Route: 048
     Dates: start: 20030801
  2. SEROQUEL [Suspect]
     Indication: DEPRESSION
     Route: 048
     Dates: start: 20030801
  3. SEROQUEL [Suspect]
     Indication: SLEEP DISORDER
     Route: 048
     Dates: start: 20030801
  4. SEROQUEL [Suspect]
     Route: 048
     Dates: start: 20060824
  5. SEROQUEL [Suspect]
     Route: 048
     Dates: start: 20060824
  6. SEROQUEL [Suspect]
     Route: 048
     Dates: start: 20060824
  7. GEODON [Concomitant]
  8. CELEXA [Concomitant]
  9. PRILOSEC [Concomitant]
  10. LITHIUM [Concomitant]
  11. GLIPIZIDE [Concomitant]
  12. DIOVAN [Concomitant]
  13. RITALIN [Concomitant]
  14. LYRICA [Concomitant]

REACTIONS (3)
  - DIABETES MELLITUS [None]
  - EYE HAEMORRHAGE [None]
  - NEUROLEPTIC MALIGNANT SYNDROME [None]
